FAERS Safety Report 10556168 (Version 2)
Quarter: 2015Q1

REPORT INFORMATION
  Report Type: Report from Study
  Country: JP (occurrence: JP)
  Receive Date: 20141031
  Receipt Date: 20150108
  Transmission Date: 20150720
  Serious: Yes (Hospitalization)
  Sender: FDA-Public Use
  Company Number: JP-ROCHE-1478547

PATIENT
  Age: 80 Year
  Sex: Female

DRUGS (11)
  1. METHOXY POLYETHYLENE GLYCOL-EPOETIN BETA [Suspect]
     Active Substance: PEGZEREPOETIN ALFA
     Indication: NEPHROGENIC ANAEMIA
     Dosage: RECEIVED MOST RECENT DOSE ON 26/MAR/2014
     Route: 058
     Dates: start: 20130109
  2. LIVALO [Concomitant]
     Active Substance: PITAVASTATIN CALCIUM
     Route: 048
     Dates: end: 20131029
  3. ARTIST [Concomitant]
     Active Substance: CARVEDILOL
     Route: 048
     Dates: end: 20121030
  4. NATRIX [Concomitant]
     Active Substance: INDAPAMIDE
     Route: 048
     Dates: start: 20121031, end: 20130507
  5. LIPITOR [Concomitant]
     Active Substance: ATORVASTATIN CALCIUM
     Route: 048
     Dates: start: 20131030, end: 20140417
  6. METHOXY POLYETHYLENE GLYCOL-EPOETIN BETA [Suspect]
     Active Substance: PEGZEREPOETIN ALFA
     Indication: NEPHROGENIC ANAEMIA
     Route: 058
     Dates: start: 20120919, end: 20121205
  7. MICARDIS [Concomitant]
     Active Substance: TELMISARTAN
     Route: 048
     Dates: start: 20140411, end: 20140417
  8. COVERSYL [Concomitant]
     Active Substance: PERINDOPRIL
     Route: 048
     Dates: start: 20130508, end: 20140408
  9. NORVASC [Concomitant]
     Active Substance: AMLODIPINE BESYLATE
     Route: 048
     Dates: end: 20140417
  10. ARTIST [Concomitant]
     Active Substance: CARVEDILOL
     Route: 048
     Dates: start: 20140226, end: 20140325
  11. MICARDIS [Concomitant]
     Active Substance: TELMISARTAN
     Route: 048
     Dates: end: 20140410

REACTIONS (4)
  - Hydronephrosis [Not Recovered/Not Resolved]
  - Colon cancer recurrent [Not Recovered/Not Resolved]
  - Hypertension [Unknown]
  - Postoperative ileus [Unknown]

NARRATIVE: CASE EVENT DATE: 20130508
